FAERS Safety Report 24655096 (Version 1)
Quarter: 2024Q4

REPORT INFORMATION
  Report Type: Spontaneous
  Country: US (occurrence: US)
  Receive Date: 20241123
  Receipt Date: 20241123
  Transmission Date: 20250115
  Serious: No
  Sender: ABBVIE
  Company Number: US-ABBVIE-6014881

PATIENT
  Age: 57 Year
  Sex: Female

DRUGS (1)
  1. BOTOX COSMETIC [Suspect]
     Active Substance: ONABOTULINUMTOXINA
     Indication: Product used for unknown indication
     Dosage: TIME INTERVAL: AS NECESSARY: THE SOLUTION WAS PREPARED WITH 1.1 ML OF SALINE INTO A 100U VIAL.?IN...
     Route: 065

REACTIONS (1)
  - Dysgeusia [Unknown]
